FAERS Safety Report 9999586 (Version 1)
Quarter: 2014Q1

REPORT INFORMATION
  Report Type: Spontaneous
  Country: US (occurrence: None)
  Receive Date: 20140311
  Receipt Date: 20140311
  Transmission Date: 20141002
  Serious: Yes (Other)
  Sender: FDA-Public Use
  Company Number: None

PATIENT
  Age: 35 Year
  Sex: Female
  Weight: 77.11 kg

DRUGS (2)
  1. SUBSYS [Suspect]
     Indication: BACK PAIN
     Route: 060
     Dates: start: 20140307, end: 20140308
  2. OXYCONTIN [Concomitant]

REACTIONS (3)
  - Device malfunction [None]
  - Incorrect dose administered [None]
  - Product quality issue [None]
